FAERS Safety Report 8786455 (Version 2)
Quarter: 2012Q4

REPORT INFORMATION
  Report Type: 
  Country: JP (occurrence: JP)
  Receive Date: 20120914
  Receipt Date: 20120928
  Transmission Date: 20130627
  Serious: Yes (Hospitalization)
  Sender: FDA-Public Use
  Company Number: JP-PFIZER INC-2012226062

PATIENT
  Age: 47 Year
  Sex: Male

DRUGS (3)
  1. CHAMPIX [Suspect]
     Dosage: 0.5 mg, 1x/day
     Route: 048
     Dates: start: 20120606, end: 20120608
  2. CHAMPIX [Suspect]
     Dosage: 0.5 mg, 2x/day
     Route: 048
     Dates: start: 20120609, end: 20120612
  3. CHAMPIX [Suspect]
     Dosage: 1 mg, 2x/day
     Route: 048
     Dates: start: 20120613, end: 201208

REACTIONS (1)
  - Diabetes mellitus inadequate control [Unknown]
